FAERS Safety Report 24215328 (Version 1)
Quarter: 2024Q3

REPORT INFORMATION
  Report Type: Report from Study
  Country: US (occurrence: US)
  Receive Date: 20240816
  Receipt Date: 20240816
  Transmission Date: 20241017
  Serious: Yes (Hospitalization)
  Sender: JOHNSON AND JOHNSON
  Company Number: US-JNJFOC-20240758710

PATIENT
  Age: 75 Year
  Sex: Female
  Weight: 59.1 kg

DRUGS (5)
  1. EPOPROSTENOL SODIUM [Suspect]
     Active Substance: EPOPROSTENOL SODIUM
     Indication: Pulmonary arterial hypertension
     Route: 042
  2. OPSUMIT [Concomitant]
     Active Substance: MACITENTAN
  3. SILDENAFIL CITRATE [Concomitant]
     Active Substance: SILDENAFIL CITRATE
  4. SOTATERCEPT [Concomitant]
     Active Substance: SOTATERCEPT
  5. REVATIO [Concomitant]
     Active Substance: SILDENAFIL CITRATE

REACTIONS (4)
  - Device delivery system issue [Unknown]
  - Device occlusion [Unknown]
  - Platelet count decreased [Unknown]
  - Underdose [Unknown]

NARRATIVE: CASE EVENT DATE: 20240719
